FAERS Safety Report 21791502 (Version 2)
Quarter: 2024Q4

REPORT INFORMATION
  Report Type: Spontaneous
  Country: BR (occurrence: BR)
  Receive Date: 20221228
  Receipt Date: 20241122
  Transmission Date: 20250115
  Serious: Yes (Other)
  Sender: CELLTRION
  Company Number: BR-CELLTRION INC.-2022BR021632

PATIENT

DRUGS (1)
  1. INFLIXIMAB [Suspect]
     Active Substance: INFLIXIMAB
     Indication: Crohn^s disease
     Dosage: ONCE A MONTH
     Route: 042

REACTIONS (5)
  - Haematochezia [Unknown]
  - Secretion discharge [Unknown]
  - Muscle spasms [Unknown]
  - Therapy interrupted [Unknown]
  - Intentional product use issue [Unknown]
